FAERS Safety Report 5423497-7 (Version None)
Quarter: 2007Q3

REPORT INFORMATION
  Report Type: 
  Country: None (occurrence: None)
  Receive Date: 20070823
  Receipt Date: 20070628
  Transmission Date: 20080115
  Serious: Yes (Hospitalization, Other)
  Sender: FDA-Public Use
  Company Number: US-PURDUE-USA_2007_0028503

PATIENT
  Sex: Male
  Weight: 100 kg

DRUGS (1)
  1. OXYCONTIN [Suspect]
     Indication: PAIN
     Dosage: UNK, SEE TEXT
     Dates: start: 20020422

REACTIONS (15)
  - AMNESIA [None]
  - ANXIETY [None]
  - CONVULSION [None]
  - DELIRIUM TREMENS [None]
  - DIARRHOEA [None]
  - DRUG DEPENDENCE [None]
  - HAEMATEMESIS [None]
  - HEADACHE [None]
  - INSOMNIA [None]
  - LOSS OF CONSCIOUSNESS [None]
  - MIGRAINE [None]
  - MUSCLE SPASMS [None]
  - NIGHTMARE [None]
  - UPPER RESPIRATORY TRACT INFECTION [None]
  - VOMITING [None]
